FAERS Safety Report 8473438-3 (Version None)
Quarter: 2012Q2

REPORT INFORMATION
  Report Type: 
  Country: None (occurrence: None)
  Receive Date: 20120628
  Receipt Date: 20120618
  Transmission Date: 20120825
  Serious: Yes (Other)
  Sender: FDA-Public Use
  Company Number: US-ELI_LILLY_AND_COMPANY-US201206006144

PATIENT
  Sex: Male

DRUGS (2)
  1. VIVANZA [Concomitant]
     Dosage: UNK, UNKNOWN
     Route: 065
  2. AXIRON [Suspect]
     Indication: BLOOD TESTOSTERONE DECREASED
     Dosage: 60 MG, QD
     Dates: start: 20120302, end: 20120317

REACTIONS (3)
  - SERUM FERRITIN INCREASED [None]
  - GENERALISED OEDEMA [None]
  - DYSPNOEA [None]
